FAERS Safety Report 7864234-6 (Version None)
Quarter: 2011Q4

REPORT INFORMATION
  Report Type: 
  Country: None (occurrence: None)
  Receive Date: 20111028
  Receipt Date: 20111024
  Transmission Date: 20120403
  Serious: Yes (Hospitalization)
  Sender: FDA-Public Use
  Company Number: JP-PFIZER INC-2011172778

PATIENT
  Age: 74 Year
  Sex: Female

DRUGS (13)
  1. TRAMADOL HYDROCHLORIDE [Concomitant]
     Indication: RENAL CELL CARCINOMA
     Dosage: 25 MG, 4X/DAY
     Route: 048
  2. LANSOPRAZOLE [Concomitant]
     Indication: PROPHYLAXIS
     Dosage: 30 MG, 1X/DAY
     Route: 048
  3. ACTOS [Concomitant]
     Indication: PULMONARY OEDEMA
  4. LOXONIN [Concomitant]
     Indication: RENAL CELL CARCINOMA
     Dosage: 60 MG, 3X/DAY
     Route: 048
     Dates: start: 20101206
  5. TEMSIROLIMUS [Suspect]
     Indication: RENAL CELL CARCINOMA
     Dosage: 25 MG, WEEKLY
     Route: 042
     Dates: start: 20101127, end: 20110109
  6. CALCIUM POLYSTYRENE SULFONATE [Concomitant]
     Indication: RENAL CELL CARCINOMA
     Dosage: 25 G, 2X/DAY
     Route: 048
     Dates: start: 20101123
  7. PURSENNID [Concomitant]
     Indication: PROPHYLAXIS
     Dosage: UNK
     Route: 048
     Dates: start: 20101129
  8. DEPAKENE [Concomitant]
     Indication: BRAIN NEOPLASM
     Dosage: 200 MG, 3X/DAY
  9. SIGMART [Concomitant]
     Indication: HYPERTENSION
     Dosage: 5 MG, 3X/DAY
     Route: 048
  10. POLARAMINE [Concomitant]
     Indication: PROPHYLAXIS
     Dosage: 5 MG, 1X/DAY
     Route: 042
     Dates: start: 20101204
  11. WARFARIN [Concomitant]
     Indication: PROPHYLAXIS
     Dosage: 2 MG, 1X/DAY
     Route: 048
  12. MAGNESIUM OXIDE [Concomitant]
     Indication: PROPHYLAXIS
     Dosage: 330 MG, 3X/DAY
     Route: 048
  13. ACTOS [Concomitant]
     Indication: PROPHYLAXIS
     Dosage: 15 MG, 1X/DAY
     Route: 048
     Dates: start: 20101120

REACTIONS (1)
  - PULMONARY OEDEMA [None]
